FAERS Safety Report 6296414-8 (Version None)
Quarter: 2009Q3

REPORT INFORMATION
  Report Type: 
  Country: None (occurrence: None)
  Receive Date: 20090804
  Receipt Date: 20090728
  Transmission Date: 20100115
  Serious: Yes (Hospitalization, Other)
  Sender: FDA-Public Use
  Company Number: MX-TEVA-203958ISR

PATIENT
  Age: 48 Year
  Sex: Female

DRUGS (2)
  1. CLINDAMYCIN [Suspect]
     Route: 048
  2. CHLORPHENIRAMINE MALEATE [Suspect]

REACTIONS (2)
  - CHOLESTASIS [None]
  - STEVENS-JOHNSON SYNDROME [None]
